FAERS Safety Report 9978069 (Version 1)
Quarter: 2014Q1

REPORT INFORMATION
  Report Type: Spontaneous
  Country: US (occurrence: US)
  Receive Date: 20140306
  Receipt Date: 20140306
  Transmission Date: 20141002
  Serious: Yes (Other)
  Sender: FDA-Public Use
  Company Number: US-PFIZER INC-2014062807

PATIENT
  Sex: 0

DRUGS (2)
  1. CELEBREX [Suspect]
     Dosage: UNK
  2. BABY ASPIRIN [Suspect]
     Dosage: UNK

REACTIONS (1)
  - Upper gastrointestinal haemorrhage [Unknown]
